FAERS Safety Report 9306968 (Version 1)
Quarter: 2013Q2

REPORT INFORMATION
  Report Type: Spontaneous
  Country: US (occurrence: US)
  Receive Date: 20130523
  Receipt Date: 20130523
  Transmission Date: 20140414
  Serious: No
  Sender: FDA-Public Use
  Company Number: US-AMGEN-USASP2013009553

PATIENT
  Age: 81 Year
  Sex: Male

DRUGS (1)
  1. ARANESP [Suspect]
     Indication: THALASSAEMIA
     Dosage: 500 MUG, UNK

REACTIONS (4)
  - Haemoglobin abnormal [Unknown]
  - Diarrhoea [Unknown]
  - Fatigue [Unknown]
  - Nasopharyngitis [Recovering/Resolving]
